FAERS Safety Report 9856651 (Version 2)
Quarter: 2014Q1

REPORT INFORMATION
  Report Type: Spontaneous
  Country: DE (occurrence: DE)
  Receive Date: 20140130
  Receipt Date: 20140130
  Transmission Date: 20141002
  Serious: Yes (Other)
  Sender: FDA-Public Use
  Company Number: PHHY2013DE149369

PATIENT
  Sex: Male

DRUGS (12)
  1. ULTIBRO BREEZHALER [Suspect]
     Indication: CHRONIC OBSTRUCTIVE PULMONARY DISEASE
     Dosage: 1 DF, QD
     Dates: start: 201309, end: 201311
  2. ARCOXIA [Concomitant]
  3. RAMIPRIL [Concomitant]
  4. INSIDON [Concomitant]
  5. ATROVENT [Concomitant]
  6. TILIDIN [Concomitant]
  7. NOVAMIN [Concomitant]
  8. CRATAEGUTT [Concomitant]
  9. EFIENT [Concomitant]
  10. BRILIQUE [Concomitant]
  11. PANTO [Concomitant]
  12. ATMADISC [Concomitant]

REACTIONS (8)
  - Angina pectoris [Recovering/Resolving]
  - Chest pain [Recovering/Resolving]
  - Eye pain [Recovering/Resolving]
  - Dry skin [Recovering/Resolving]
  - Urinary retention [Unknown]
  - Cough [Recovering/Resolving]
  - Nasal congestion [Recovering/Resolving]
  - Dysuria [Recovering/Resolving]
